FAERS Safety Report 5902886-8 (Version None)
Quarter: 2008Q3

REPORT INFORMATION
  Report Type: 
  Country: None (occurrence: None)
  Receive Date: 20080929
  Receipt Date: 20080929
  Transmission Date: 20090109
  Serious: Yes (Hospitalization)
  Sender: FDA-Public Use
  Company Number: None

PATIENT
  Age: 70 Year
  Sex: Female
  Weight: 65.7716 kg

DRUGS (4)
  1. DOCETAXEL [Suspect]
     Indication: CHEMOTHERAPY
     Dosage: 126 MG 1 EVERY 3-WEEKS IV
     Route: 042
     Dates: start: 20080716, end: 20080917
  2. DOCETAXEL [Suspect]
     Indication: PREOPERATIVE CARE
     Dosage: 126 MG 1 EVERY 3-WEEKS IV
     Route: 042
     Dates: start: 20080716, end: 20080917
  3. CAPECITABINE 500MG ROCHE [Suspect]
     Indication: CHEMOTHERAPY
     Dosage: 500MG TABLET 3 TABS AM/2 TABS PO
     Route: 048
     Dates: start: 20080716, end: 20080917
  4. CAPECITABINE 500MG ROCHE [Suspect]
     Indication: PREOPERATIVE CARE
     Dosage: 500MG TABLET 3 TABS AM/2 TABS PO
     Route: 048
     Dates: start: 20080716, end: 20080917

REACTIONS (3)
  - DIARRHOEA [None]
  - FEBRILE NEUTROPENIA [None]
  - HELICOBACTER INFECTION [None]
